FAERS Safety Report 9157691 (Version 1)
Quarter: 2013Q1

REPORT INFORMATION
  Report Type: Report from Study
  Country: NL (occurrence: NL)
  Receive Date: 20130312
  Receipt Date: 20130312
  Transmission Date: 20140127
  Serious: Yes (Hospitalization, Other)
  Sender: FDA-Public Use
  Company Number: PHHO2012NL011971

PATIENT
  Age: 59 Year
  Sex: Female
  Weight: 74 kg

DRUGS (10)
  1. RHUMAB-E25 [Suspect]
     Indication: RHEUMATOID ARTHRITIS
     Dosage: UNK
     Route: 058
     Dates: start: 20120319, end: 20120711
  2. LEFLUNOMIDE [Suspect]
     Indication: ARTHRITIS
     Dosage: 20 MG, QD
     Route: 048
     Dates: start: 200701, end: 20120730
  3. LEFLUNOMIDE [Suspect]
     Dosage: 10 MG, UNK
     Route: 048
     Dates: start: 20130109, end: 20130123
  4. OMEPRAZOLE [Suspect]
     Indication: ULCER
     Dosage: 20 MG, QD
     Route: 048
     Dates: start: 20110608, end: 20120730
  5. LISINOPRIL [Suspect]
     Indication: HYPERTENSION
     Dosage: 20 MG, QD
     Route: 048
     Dates: start: 201001, end: 20120730
  6. DICLOFENAC [Suspect]
     Indication: ARTHRITIS
     Dosage: 75 MG, BID
     Route: 048
     Dates: start: 20110608, end: 20120730
  7. ZALDIAR [Concomitant]
     Indication: PAIN
     Dosage: 37.5 / 500
     Route: 048
     Dates: start: 20120229, end: 20120730
  8. HYDROCHLOROTHIAZIDE [Concomitant]
     Indication: HYPERTENSION
     Dosage: 125 MG, QD
     Route: 048
     Dates: start: 201001, end: 20120730
  9. PARACETAMOL [Concomitant]
     Indication: PAIN
     Dosage: 500 MG, QD
     Route: 048
     Dates: start: 20120229
  10. CODEINE [Concomitant]
     Indication: PAIN
     Dosage: 10 MG, QD
     Route: 048
     Dates: start: 20120220, end: 20120730

REACTIONS (2)
  - Tubulointerstitial nephritis [Recovering/Resolving]
  - Angioedema [Recovered/Resolved]
